FAERS Safety Report 19355484 (Version 1)
Quarter: 2021Q2

REPORT INFORMATION
  Report Type: Spontaneous
  Country: US (occurrence: US)
  Receive Date: 20210601
  Receipt Date: 20210601
  Transmission Date: 20210717
  Serious: No
  Sender: FDA-Public Use
  Company Number: None

PATIENT
  Age: 62 Year
  Sex: Female

DRUGS (1)
  1. BOTOX [Suspect]
     Active Substance: ONABOTULINUMTOXINA
     Dosage: ?         200 UNITS  OTHER FREQUENCY:OTHER;?
     Route: 030
     Dates: start: 202101, end: 202104

REACTIONS (2)
  - Eye pain [None]
  - Eye disorder [None]

NARRATIVE: CASE EVENT DATE: 20210413
